FAERS Safety Report 8806835 (Version 1)
Quarter: 2012Q4

REPORT INFORMATION
  Report Type: Spontaneous
  Country: AU (occurrence: None)
  Receive Date: 20120919
  Receipt Date: 20120919
  Transmission Date: 20130627
  Serious: Yes (Hospitalization)
  Sender: FDA-Public Use
  Company Number: AVE_02191_2012

PATIENT
  Age: 35 Year
  Sex: Male

DRUGS (3)
  1. NICOTINE TRANSDERMAL SYSTEM [Suspect]
     Route: 062
     Dates: start: 2011, end: 2011
  2. RISPERIDONE [Concomitant]
  3. SODIUM VALPROATE [Concomitant]

REACTIONS (9)
  - Psychomotor hyperactivity [None]
  - Energy increased [None]
  - Insomnia [None]
  - Irritability [None]
  - Anger [None]
  - Aggression [None]
  - Speech disorder [None]
  - Elevated mood [None]
  - Cerebral atrophy [None]
